FAERS Safety Report 8414882-X (Version None)
Quarter: 2012Q2

REPORT INFORMATION
  Report Type: 
  Country: None (occurrence: None)
  Receive Date: 20120601
  Receipt Date: 20120601
  Transmission Date: 20120825
  Serious: No
  Sender: FDA-Public Use
  Company Number: None

PATIENT
  Sex: Female

DRUGS (1)
  1. BLISS FACIAL SCRUB + CLAIRSONIC FACIAL BRUSH [Suspect]
     Dates: start: 20120120, end: 20120120

REACTIONS (9)
  - EYE SWELLING [None]
  - FACIAL PARESIS [None]
  - HYPOAESTHESIA [None]
  - HERPES ZOSTER [None]
  - CONDITION AGGRAVATED [None]
  - LACRIMATION INCREASED [None]
  - PARAESTHESIA [None]
  - SCAR [None]
  - CHEMICAL INJURY [None]
